FAERS Safety Report 7212414-5 (Version None)
Quarter: 2010Q4

REPORT INFORMATION
  Report Type: 
  Country: None (occurrence: None)
  Receive Date: 20101227
  Receipt Date: 20101215
  Transmission Date: 20110411
  Serious: Yes (Death, Congenital Anomaly, Other)
  Sender: FDA-Public Use
  Company Number: 023801

PATIENT

DRUGS (4)
  1. XYZALL (XYZALL) (NOT SPECIFIED) [Suspect]
     Dosage: TRANSPLACENTAL
     Route: 064
  2. CELESTAMINE TAB [Suspect]
     Dosage: TRANSPLACENTAL
     Route: 064
  3. SPASFON (SPASFON) [Suspect]
     Dosage: TRANSPLACENTAL
     Route: 064
  4. DOLIPRANE (DOLIPRANE) [Suspect]
     Dosage: TRANSPLACENTAL
     Route: 064

REACTIONS (6)
  - CONGENITAL ANOMALY [None]
  - DILATATION VENTRICULAR [None]
  - HYDROCEPHALUS [None]
  - INTRA-UTERINE DEATH [None]
  - MATERNAL DRUGS AFFECTING FOETUS [None]
  - NERVOUS SYSTEM DISORDER [None]
